FAERS Safety Report 7570587-9 (Version None)
Quarter: 2011Q2

REPORT INFORMATION
  Report Type: 
  Country: None (occurrence: None)
  Receive Date: 20110624
  Receipt Date: 20110408
  Transmission Date: 20111010
  Serious: No
  Sender: FDA-Public Use
  Company Number: US-ALLERGAN-1105018US

PATIENT
  Age: 39 Year
  Sex: Female

DRUGS (2)
  1. NALCOM A OTC EYE DROPS [Concomitant]
     Dosage: UNK
  2. LATISSE [Suspect]
     Indication: HAIR DISORDER
     Dosage: 1 GTT, QHS
     Dates: start: 20100501, end: 20101101

REACTIONS (3)
  - TRICHORRHEXIS [None]
  - MADAROSIS [None]
  - APPLICATION SITE DISCOLOURATION [None]
